FAERS Safety Report 5247887-0 (Version None)
Quarter: 2007Q1

REPORT INFORMATION
  Report Type: 
  Country: None (occurrence: None)
  Receive Date: 20070223
  Receipt Date: 20070209
  Transmission Date: 20070707
  Serious: Yes (Other)
  Sender: FDA-Public Use
  Company Number: PHBS2007JP02755

PATIENT
  Age: 57 Year
  Sex: Female

DRUGS (3)
  1. ZOMETA [Suspect]
     Indication: METASTASES TO BONE
     Dosage: 4 MG/DAY
     Route: 065
     Dates: start: 20060801
  2. AREDIA [Suspect]
     Indication: METASTASES TO BONE
     Dosage: 90 MG/DAY
     Route: 065
     Dates: start: 20050101, end: 20060801
  3. ARIMIDEX [Suspect]
     Dosage: 1 MG/DAY
     Route: 065
     Dates: start: 20050101

REACTIONS (3)
  - MOUTH ULCERATION [None]
  - OSTEONECROSIS [None]
  - TOOTH EXTRACTION [None]
